FAERS Safety Report 4687408-4 (Version None)
Quarter: 2005Q2

REPORT INFORMATION
  Report Type: 
  Country: None (occurrence: None)
  Receive Date: 20050608
  Receipt Date: 20050608
  Transmission Date: 20051028
  Serious: Yes (Other)
  Sender: FDA-Public Use
  Company Number: None

PATIENT
  Age: 61 Year
  Sex: Male
  Weight: 76.2043 kg

DRUGS (12)
  1. ZETIA [Suspect]
     Indication: HYPERLIPIDAEMIA
     Dosage: 10MG  Q DAY ORAL
     Route: 048
     Dates: start: 20041022, end: 20050325
  2. ACETAMINOPHEN [Concomitant]
  3. ASPIRIN [Concomitant]
  4. ATENOLOL [Concomitant]
  5. COLCHICINE [Concomitant]
  6. DOCUSATE [Concomitant]
  7. FINASTERIDE [Concomitant]
  8. NITROGLYCERIN [Concomitant]
  9. NITROGLYCERIN [Concomitant]
  10. HYDROCODONE 5/ACETAMINOPHEN [Concomitant]
  11. LISINOPRIL [Concomitant]
  12. TERAZOSIN [Concomitant]

REACTIONS (1)
  - MYALGIA [None]
